FAERS Safety Report 4378482-3 (Version None)
Quarter: 2004Q2

REPORT INFORMATION
  Report Type: 
  Country: None (occurrence: None)
  Receive Date: 20040616
  Receipt Date: 20040607
  Transmission Date: 20050107
  Serious: Yes (Other)
  Sender: FDA-Public Use
  Company Number: US-JNJFOC-20040602902

PATIENT
  Age: 26 Year
  Sex: Female
  Weight: 72.58 kg

DRUGS (2)
  1. ORTHO EVRA [Suspect]
     Indication: CONTRACEPTION
     Route: 062
     Dates: start: 20040201
  2. ANITBIOTICS [Concomitant]

REACTIONS (3)
  - APPENDICECTOMY [None]
  - METRORRHAGIA [None]
  - PHARYNGITIS [None]
